FAERS Safety Report 6568687-5 (Version None)
Quarter: 2010Q1

REPORT INFORMATION
  Report Type: 
  Country: None (occurrence: None)
  Receive Date: 20100203
  Receipt Date: 20100121
  Transmission Date: 20100710
  Serious: Yes (Other)
  Sender: FDA-Public Use
  Company Number: TW-BAUSCH-2010BL000349

PATIENT
  Age: 65 Year
  Sex: Male

DRUGS (2)
  1. GENTAMICIN [Suspect]
     Indication: PROPHYLAXIS
     Route: 031
  2. GENTAMICIN [Suspect]
     Indication: OFF LABEL USE
     Route: 031

REACTIONS (1)
  - RETINAL INFARCTION [None]
